FAERS Safety Report 19479360 (Version 1)
Quarter: 2021Q2

REPORT INFORMATION
  Report Type: Spontaneous
  Country: DE (occurrence: CN)
  Receive Date: 20210630
  Receipt Date: 20210630
  Transmission Date: 20210717
  Serious: Yes (Other)
  Sender: FDA-Public Use
  Company Number: CN-ELI_LILLY_AND_COMPANY-CN202106013850

PATIENT
  Age: 61 Year
  Sex: Male
  Weight: 57 kg

DRUGS (5)
  1. FLUOROURACIL. [Suspect]
     Active Substance: FLUOROURACIL
     Indication: RECTAL NEOPLASM
     Dosage: 2.125 G, UNK
     Route: 041
     Dates: start: 20210517, end: 20210518
  2. CALCIUM FOLINATE [Suspect]
     Active Substance: LEUCOVORIN CALCIUM
     Indication: RECTAL NEOPLASM
     Dosage: .7 G, UNK
     Route: 041
     Dates: start: 20210517, end: 20210517
  3. ERBITUX [Suspect]
     Active Substance: CETUXIMAB
     Indication: RECTAL NEOPLASM
     Dosage: 800 MG, UNK
     Route: 041
     Dates: start: 20210517
  4. FLUOROURACIL. [Suspect]
     Active Substance: FLUOROURACIL
     Indication: RECTAL NEOPLASM
     Dosage: .7 G, UNK
     Route: 041
     Dates: start: 20210517, end: 20210517
  5. IRINOTECAN HYDROCHLORIDE. [Suspect]
     Active Substance: IRINOTECAN HYDROCHLORIDE
     Indication: RECTAL NEOPLASM
     Dosage: .3 G, UNK
     Route: 041
     Dates: start: 20210517, end: 20210517

REACTIONS (1)
  - Granulocytopenia [Recovering/Resolving]

NARRATIVE: CASE EVENT DATE: 20210601
